FAERS Safety Report 6895780-X (Version None)
Quarter: 2010Q3

REPORT INFORMATION
  Report Type: 
  Country: None (occurrence: None)
  Receive Date: 20100802
  Receipt Date: 20100722
  Transmission Date: 20110219
  Serious: Yes (Other)
  Sender: FDA-Public Use
  Company Number: US-PFIZER INC-2010077775

PATIENT
  Sex: Male

DRUGS (3)
  1. XANAX [Suspect]
  2. CARDURA [Suspect]
     Indication: BLOOD PRESSURE
  3. VICODIN [Suspect]

REACTIONS (8)
  - AGGRESSION [None]
  - AGITATION [None]
  - AGORAPHOBIA [None]
  - ANGER [None]
  - ANXIETY [None]
  - DEPRESSION [None]
  - PANIC ATTACK [None]
  - RESTLESSNESS [None]
